FAERS Safety Report 20992340 (Version 14)
Quarter: 2024Q4

REPORT INFORMATION
  Report Type: Spontaneous
  Country: US (occurrence: US)
  Receive Date: 20220622
  Receipt Date: 20241120
  Transmission Date: 20250115
  Serious: Yes (Other)
  Sender: PFIZER
  Company Number: US-PFIZER INC-PV202200006533

PATIENT
  Age: 72 Year
  Sex: Female
  Weight: 57.5 kg

DRUGS (5)
  1. IBRANCE [Suspect]
     Active Substance: PALBOCICLIB
     Indication: Breast cancer female
     Dosage: 125 MG
  2. IBRANCE [Suspect]
     Active Substance: PALBOCICLIB
     Indication: Breast cancer female
     Dosage: DAILY 21 DAYS ON AND 7 DAYS OFF
     Route: 048
     Dates: start: 20220618, end: 202207
  3. ZOMETA [Concomitant]
     Active Substance: ZOLEDRONIC ACID
     Dosage: UNK
     Dates: start: 20220618, end: 20230921
  4. ANASTROZOLE [Concomitant]
     Active Substance: ANASTROZOLE
     Dosage: 1 MG, DAILY
  5. XGEVA [Concomitant]
     Active Substance: DENOSUMAB
     Dosage: UNK
     Dates: start: 20230921

REACTIONS (12)
  - Neutropenia [Unknown]
  - Neoplasm progression [Unknown]
  - Product dispensing issue [Unknown]
  - Pain [Unknown]
  - Bone pain [Unknown]
  - Skin exfoliation [Recovered/Resolved]
  - Nasal congestion [Recovered/Resolved]
  - Investigation abnormal [Unknown]
  - Rash [Recovered/Resolved]
  - White blood cell count decreased [Unknown]
  - Full blood count decreased [Unknown]
  - Depression [Unknown]

NARRATIVE: CASE EVENT DATE: 20220101
